FAERS Safety Report 24296143 (Version 3)
Quarter: 2024Q4

REPORT INFORMATION
  Report Type: Spontaneous
  Country: US (occurrence: US)
  Receive Date: 20240909
  Receipt Date: 20241021
  Transmission Date: 20250115
  Serious: Yes (Hospitalization, Other)
  Sender: AUROBINDO
  Company Number: US-AUROBINDO-AUR-APL-2024-043421

PATIENT
  Age: 67 Year
  Sex: Female
  Weight: 103.9 kg

DRUGS (13)
  1. METHOTREXATE [Suspect]
     Active Substance: METHOTREXATE
     Indication: Rheumatoid arthritis
     Dosage: 15 MILLIGRAM, EVERY WEEK
     Route: 048
  2. FOLIC ACID [Suspect]
     Active Substance: FOLIC ACID
     Indication: Rheumatoid arthritis
     Dosage: 1 MILLIGRAM, DAILY
     Route: 048
  3. FOLIC ACID [Suspect]
     Active Substance: FOLIC ACID
     Dosage: 2 MILLIGRAM, DAILY
     Route: 048
  4. MORPHINE [Concomitant]
     Active Substance: MORPHINE
     Indication: Oral disorder
     Dosage: UNK
     Route: 048
  5. DIPHENHYDRAMINE [Concomitant]
     Active Substance: DIPHENHYDRAMINE
     Indication: Oral pain
     Dosage: 12.5 MG/5 ML
     Route: 065
  6. LIDOCAINE [Concomitant]
     Active Substance: LIDOCAINE
     Indication: Oral pain
     Dosage: 2%
     Route: 065
  7. SIMETHICONE (DIMETHICONE) [Concomitant]
     Active Substance: DIMETHICONE
     Indication: Oral pain
     Dosage: UNK
     Route: 065
  8. CHLORHEXIDINE [Concomitant]
     Active Substance: CHLORHEXIDINE
     Indication: Product used for unknown indication
     Dosage: 0.12% ORAL RINSE 15 ML TWICE DAILY
     Route: 065
  9. ACETAMINOPHEN [Concomitant]
     Active Substance: ACETAMINOPHEN
     Indication: Product used for unknown indication
     Dosage: 650 MG TABLET BY MOUTH EVERY 4 HOURS AS NEEDED
     Route: 048
  10. LEUCOVORIN [Concomitant]
     Active Substance: LEUCOVORIN\LEUCOVORIN CALCIUM
     Indication: Product used for unknown indication
     Dosage: 50 MG EVERY 6 HOURS
     Route: 048
  11. VANCOMYCIN [Concomitant]
     Active Substance: VANCOMYCIN
     Indication: Product used for unknown indication
     Dosage: 1 G IV EVERY 12 HOURS
     Route: 065
  12. CEFEPIME [Concomitant]
     Active Substance: CEFEPIME HYDROCHLORIDE
     Indication: Product used for unknown indication
     Dosage: 2 G IV EVERY HOURS
     Route: 065
  13. Ampicilline [Concomitant]
     Indication: Product used for unknown indication
     Dosage: 2 G IV EVERY 6 HOURS WHICH WAS CONTINUED FOR 8 DAY
     Route: 065

REACTIONS (5)
  - Oral disorder [Recovering/Resolving]
  - Stomatitis [Unknown]
  - Pancytopenia [Unknown]
  - Toxicity to various agents [Unknown]
  - Treatment noncompliance [Unknown]
